FAERS Safety Report 6590225-1 (Version None)
Quarter: 2010Q1

REPORT INFORMATION
  Report Type: 
  Country: None (occurrence: None)
  Receive Date: 20100212
  Receipt Date: 20100126
  Transmission Date: 20100710
  Serious: Yes (Other)
  Sender: FDA-Public Use
  Company Number: 2009S1006272

PATIENT
  Age: 72 Year
  Sex: Male

DRUGS (2)
  1. EZ PREP KIT [Suspect]
     Indication: COLONOSCOPY
     Dosage: 75 ML; TOTAL; PO
     Route: 048
     Dates: start: 20081205, end: 20081205
  2. SINGULAIR [Concomitant]

REACTIONS (1)
  - RENAL DISORDER [None]
